FAERS Safety Report 19927310 (Version 3)
Quarter: 2022Q1

REPORT INFORMATION
  Report Type: Report from Study
  Country: US (occurrence: US)
  Receive Date: 20211007
  Receipt Date: 20220215
  Transmission Date: 20220424
  Serious: No
  Sender: FDA-Public Use
  Company Number: NVSC2021US229147

PATIENT
  Age: 53 Year
  Sex: Female

DRUGS (2)
  1. GILENYA [Suspect]
     Active Substance: FINGOLIMOD HYDROCHLORIDE
     Indication: Multiple sclerosis
     Dosage: 0.5 MG
     Route: 048
     Dates: start: 20211004
  2. GILENYA [Suspect]
     Active Substance: FINGOLIMOD HYDROCHLORIDE
     Dosage: 0.5 MG, QD
     Route: 048

REACTIONS (5)
  - Fatigue [Unknown]
  - Food poisoning [Recovering/Resolving]
  - Fall [Unknown]
  - Humerus fracture [Unknown]
  - Hypovitaminosis [Unknown]

NARRATIVE: CASE EVENT DATE: 20211004
